FAERS Safety Report 15885567 (Version 1)
Quarter: 2019Q1

REPORT INFORMATION
  Report Type: Spontaneous
  Country: FR (occurrence: FR)
  Receive Date: 20190129
  Receipt Date: 20190129
  Transmission Date: 20190417
  Serious: Yes (Hospitalization)
  Sender: FDA-Public Use
  Company Number: FR-TEVA-2019-FR-1004540

PATIENT
  Age: 49 Year
  Sex: Male
  Weight: 54 kg

DRUGS (6)
  1. NOVOMIX [Concomitant]
     Active Substance: INSULIN ASPART
     Indication: DIABETES MELLITUS
     Dosage: 26 IU (INTERNATIONAL UNIT) DAILY;
     Route: 058
  2. TAHOR [Concomitant]
     Active Substance: ATORVASTATIN CALCIUM
     Indication: DIABETES MELLITUS
     Dosage: 1 DOSAGE FORMS DAILY;
     Route: 048
  3. RAMIPRIL. [Concomitant]
     Active Substance: RAMIPRIL
     Indication: HYPERTENSION
     Dosage: 10 MILLIGRAM DAILY;
     Route: 048
  4. ISOPHANE INSULIN [Concomitant]
     Active Substance: INSULIN NOS
     Indication: DIABETES MELLITUS
     Dosage: 28 IU (INTERNATIONAL UNIT) DAILY;
     Route: 058
  5. LEVOCETIRIZINE (DICHLORHYDRATE DE) [Concomitant]
     Indication: FACE OEDEMA
     Dosage: 5 MILLIGRAM DAILY;
     Route: 048
     Dates: start: 20180823, end: 20180828
  6. PREDNISOLONE. [Suspect]
     Active Substance: PREDNISOLONE
     Indication: FACE OEDEMA
     Dosage: 60 MILLIGRAM DAILY;
     Route: 065
     Dates: start: 20180823, end: 20180828

REACTIONS (1)
  - Diabetic ketoacidotic hyperglycaemic coma [Recovered/Resolved]

NARRATIVE: CASE EVENT DATE: 20180925
